FAERS Safety Report 10616173 (Version 4)
Quarter: 2015Q4

REPORT INFORMATION
  Report Type: Spontaneous
  Country: US (occurrence: US)
  Receive Date: 20141201
  Receipt Date: 20151105
  Transmission Date: 20160304
  Serious: Yes (Hospitalization, Other)
  Sender: FDA-Public Use
  Company Number: US-PFIZER INC-2014326900

PATIENT
  Age: 73 Year
  Sex: Male

DRUGS (1)
  1. SUTENT [Suspect]
     Active Substance: SUNITINIB MALATE
     Indication: RENAL CELL CARCINOMA
     Dosage: 37.5 MG, (12.5MG X 3 TIMES DAILY) (3 DAYS WEEKLY)
     Dates: start: 20120501, end: 201509

REACTIONS (1)
  - Eye disorder [Recovering/Resolving]
